FAERS Safety Report 7337992-7 (Version None)
Quarter: 2011Q1

REPORT INFORMATION
  Report Type: 
  Country: None (occurrence: None)
  Receive Date: 20110308
  Receipt Date: 20110301
  Transmission Date: 20110831
  Serious: Yes (Hospitalization)
  Sender: FDA-Public Use
  Company Number: DE-ROCHE-761142

PATIENT
  Sex: Male
  Weight: 68 kg

DRUGS (3)
  1. CAPECITABINE [Suspect]
     Indication: COLON CANCER METASTATIC
     Dosage: DAY 1 TO DAY 14 OF A CYCLE.
     Route: 065
     Dates: start: 20110131, end: 20110213
  2. BEVACIZUMAB [Suspect]
     Route: 042
     Dates: start: 20110228
  3. BEVACIZUMAB [Suspect]
     Indication: COLON CANCER METASTATIC
     Dosage: DAY 1 OF A CYCLE.
     Route: 042
     Dates: start: 20110131, end: 20110131

REACTIONS (4)
  - GENERAL PHYSICAL HEALTH DETERIORATION [None]
  - URINE OUTPUT DECREASED [None]
  - DIARRHOEA [None]
  - ELECTROLYTE IMBALANCE [None]
